FAERS Safety Report 8954090 (Version 1)
Quarter: 2012Q4

REPORT INFORMATION
  Report Type: 
  Country: US (occurrence: US)
  Receive Date: 20121207
  Receipt Date: 20121207
  Transmission Date: 20130627
  Serious: Yes (Other)
  Sender: FDA-Public Use
  Company Number: US-009507513-1212USA000807

PATIENT
  Sex: Female

DRUGS (2)
  1. PEGINTRON [Suspect]
     Indication: HEPATITIS C
     Dosage: UNK
     Dates: start: 20050225, end: 20050420
  2. RIBAVIRIN [Suspect]
     Dosage: UNK
     Dates: start: 20050225, end: 20050420

REACTIONS (1)
  - Hallucination [Unknown]
